FAERS Safety Report 15782005 (Version 5)
Quarter: 2022Q1

REPORT INFORMATION
  Report Type: Spontaneous
  Country: US (occurrence: US)
  Receive Date: 20190102
  Receipt Date: 20220323
  Transmission Date: 20220423
  Serious: No
  Sender: FDA-Public Use
  Company Number: US-PFIZER INC-2018537130

PATIENT
  Age: 16 Year
  Sex: Female

DRUGS (4)
  1. SOMATROPIN [Suspect]
     Active Substance: SOMATROPIN
     Dosage: 0.6 MG, 3 DAYS A WEEK
  2. SOMATROPIN [Suspect]
     Active Substance: SOMATROPIN
     Dosage: 0.8 MG, UNK (3 TIMES A WEEK)
     Dates: start: 20100804
  3. SOMATROPIN [Suspect]
     Active Substance: SOMATROPIN
     Dosage: 0.8 MG, DAILY
     Dates: start: 20100804
  4. SOMATROPIN [Suspect]
     Active Substance: SOMATROPIN
     Dosage: 0.8 MG, (ON MONDAY, TUESDAY,THURSDAY AND FRIDAY)
     Dates: start: 20100804

REACTIONS (7)
  - Blood urea increased [Unknown]
  - Blood cholesterol increased [Unknown]
  - Low density lipoprotein increased [Unknown]
  - Insulin-like growth factor decreased [Unknown]
  - High density lipoprotein decreased [Unknown]
  - Blood thyroid stimulating hormone increased [Unknown]
  - Off label use [Unknown]

NARRATIVE: CASE EVENT DATE: 20150522
